FAERS Safety Report 12503461 (Version 2)
Quarter: 2016Q3

REPORT INFORMATION
  Report Type: Spontaneous
  Country: US (occurrence: US)
  Receive Date: 20160628
  Receipt Date: 20160803
  Transmission Date: 20161109
  Serious: No
  Sender: FDA-Public Use
  Company Number: US-PFIZER INC-2016316063

PATIENT
  Age: 86 Year
  Sex: Female
  Weight: 77 kg

DRUGS (5)
  1. AMLODIPINE BESILATE [Suspect]
     Active Substance: AMLODIPINE BESYLATE
     Indication: BLOOD PRESSURE ABNORMAL
     Dosage: 5 MG, 2X/DAY
  2. ZOLPIDEM [Suspect]
     Active Substance: ZOLPIDEM\ZOLPIDEM TARTRATE
     Indication: SLEEP DISORDER
     Dosage: 10MG EVERY NIGHT
  3. METOPROLOL. [Suspect]
     Active Substance: METOPROLOL
     Indication: BLOOD PRESSURE ABNORMAL
     Dosage: 50 MG, UNK
  4. CENTRUM SILVER WOMEN^S 50+ [Suspect]
     Active Substance: MINERALS\VITAMINS
     Dosage: ONE TABLET EVERY MORNING WITH WATER
     Route: 048
     Dates: start: 201606, end: 20160622
  5. METOPROLOL. [Suspect]
     Active Substance: METOPROLOL
     Dosage: 100 MG, 2X/DAY

REACTIONS (5)
  - Fatigue [Recovering/Resolving]
  - Activities of daily living impaired [Recovering/Resolving]
  - Asthenia [Recovering/Resolving]
  - Drug ineffective [Unknown]
  - Feeling abnormal [Recovering/Resolving]

NARRATIVE: CASE EVENT DATE: 201606
